FAERS Safety Report 19057142 (Version 1)
Quarter: 2021Q1

REPORT INFORMATION
  Report Type: Spontaneous
  Country: US (occurrence: US)
  Receive Date: 20210325
  Receipt Date: 20210325
  Transmission Date: 20210420
  Serious: No
  Sender: FDA-Public Use
  Company Number: US-DRREDDYS-USA/USA/21/0132914

PATIENT
  Age: 15 Year
  Sex: Female

DRUGS (2)
  1. ZENATANE [Suspect]
     Active Substance: ISOTRETINOIN
     Indication: PRODUCT USED FOR UNKNOWN INDICATION
     Dosage: RMA ISSUE DATE:10/12/2020 4:41:21 PM ,1/1/2021 3:52:04 PM
     Route: 048
  2. ZENATANE [Suspect]
     Active Substance: ISOTRETINOIN
     Dosage: RMA ISSUE DATE :9/11/2020 4:29:03 PM,11/23/2020 12:54:41 PM
     Route: 048

REACTIONS (1)
  - Adverse drug reaction [Unknown]
